FAERS Safety Report 9682703 (Version 2)
Quarter: 2013Q4

REPORT INFORMATION
  Report Type: Spontaneous
  Country: GB (occurrence: GB)
  Receive Date: 20131112
  Receipt Date: 20131112
  Transmission Date: 20140711
  Serious: Yes (Other)
  Sender: FDA-Public Use
  Company Number: GB-ROCHE-1287043

PATIENT
  Sex: Female

DRUGS (3)
  1. VEMURAFENIB [Suspect]
     Indication: METASTATIC MALIGNANT MELANOMA
     Route: 048
     Dates: start: 2011, end: 20130925
  2. VEMURAFENIB [Suspect]
     Dosage: REDUCED DOSE
     Route: 065
     Dates: start: 201307
  3. VEMURAFENIB [Suspect]
     Route: 065
     Dates: end: 20130925

REACTIONS (2)
  - Uveitis [Unknown]
  - Pain of skin [Not Recovered/Not Resolved]
